FAERS Safety Report 4979509-8 (Version None)
Quarter: 2006Q2

REPORT INFORMATION
  Report Type: 
  Country: None (occurrence: None)
  Receive Date: 20060421
  Receipt Date: 20060413
  Transmission Date: 20061013
  Serious: Yes (Other)
  Sender: FDA-Public Use
  Company Number: 2006GB00642

PATIENT
  Age: 41 Year
  Sex: Female

DRUGS (3)
  1. RHINOCORT TURBOHALER [Suspect]
     Route: 045
     Dates: start: 20050228, end: 20050328
  2. NASONEX [Suspect]
     Route: 045
     Dates: start: 20050222, end: 20050322
  3. RHINOLAST [Suspect]
     Dosage: INTENDED DRUG
     Route: 045

REACTIONS (8)
  - COUGH [None]
  - DYSPNOEA [None]
  - EAR PAIN [None]
  - MEDICATION ERROR [None]
  - NASAL MUCOSAL DISORDER [None]
  - NASOPHARYNGEAL DISORDER [None]
  - NASOPHARYNGITIS [None]
  - SINUS HEADACHE [None]
